FAERS Safety Report 18245122 (Version 1)
Quarter: 2020Q3

REPORT INFORMATION
  Report Type: Spontaneous
  Country: US (occurrence: US)
  Receive Date: 20200908
  Receipt Date: 20200908
  Transmission Date: 20201103
  Serious: Yes (Other)
  Sender: FDA-Public Use
  Company Number: US-COOPERSURGICAL, INC.-US-2020CPS002104

PATIENT
  Age: 27 Year
  Sex: Female
  Weight: 59.86 kg

DRUGS (1)
  1. PARAGARD T 380A [Suspect]
     Active Substance: COPPER
     Indication: CONTRACEPTION
     Dosage: UNK
     Route: 015
     Dates: start: 20200413, end: 20200825

REACTIONS (5)
  - Drug ineffective [Unknown]
  - Pregnancy with contraceptive device [Unknown]
  - Abortion threatened [Unknown]
  - Influenza like illness [Unknown]
  - Blood oestrogen decreased [Unknown]

NARRATIVE: CASE EVENT DATE: 202007
